FAERS Safety Report 4265174-4 (Version None)
Quarter: 2004Q1

REPORT INFORMATION
  Report Type: 
  Country: None (occurrence: None)
  Receive Date: 20040106
  Receipt Date: 20040106
  Transmission Date: 20041129
  Serious: Yes (Life-Threatening, Hospitalization)
  Sender: FDA-Public Use
  Company Number: None

PATIENT
  Age: 74 Year
  Sex: Female
  Weight: 63.5036 kg

DRUGS (3)
  1. LOVASTATIN [Suspect]
     Indication: HYPERLIPIDAEMIA
     Dosage: 20 MG DAILY PO PTA
     Route: 048
  2. GLUCOVANCE [Concomitant]
  3. XALATAN [Concomitant]

REACTIONS (7)
  - ACIDOSIS [None]
  - COMA [None]
  - COUGH [None]
  - LOSS OF CONSCIOUSNESS [None]
  - PYREXIA [None]
  - RESPIRATORY FAILURE [None]
  - RHABDOMYOLYSIS [None]
